FAERS Safety Report 6620946-3 (Version None)
Quarter: 2010Q1

REPORT INFORMATION
  Report Type: 
  Country: None (occurrence: None)
  Receive Date: 20100309
  Receipt Date: 20100303
  Transmission Date: 20100710
  Serious: Yes (Other)
  Sender: FDA-Public Use
  Company Number: US-RB-003926-10

PATIENT
  Age: 46 Year
  Sex: Male

DRUGS (1)
  1. SUBOXONE [Suspect]
     Indication: DRUG USE FOR UNKNOWN INDICATION
     Dosage: UNKNOWN DOSING DETAILS
     Route: 065

REACTIONS (8)
  - ANIMAL BITE [None]
  - CONSTIPATION [None]
  - DEPRESSION [None]
  - FINGER AMPUTATION [None]
  - INFECTION [None]
  - NASOPHARYNGITIS [None]
  - PAIN [None]
  - PYREXIA [None]
